FAERS Safety Report 4983522-4 (Version None)
Quarter: 2006Q2

REPORT INFORMATION
  Report Type: 
  Country: None (occurrence: None)
  Receive Date: 20060419
  Receipt Date: 20060410
  Transmission Date: 20061013
  Serious: Yes (Other)
  Sender: FDA-Public Use
  Company Number: 2006049335

PATIENT
  Age: 45 Year
  Sex: Male

DRUGS (1)
  1. FRAGMIN [Suspect]
     Indication: THROMBOSIS PROPHYLAXIS
     Dosage: 7500 I.U. SUBCUTANEOUS
     Route: 058
     Dates: start: 20060401

REACTIONS (1)
  - THROMBOCYTHAEMIA [None]
